FAERS Safety Report 7376005-8 (Version None)
Quarter: 2011Q1

REPORT INFORMATION
  Report Type: 
  Country: None (occurrence: None)
  Receive Date: 20110315
  Receipt Date: 20110302
  Transmission Date: 20110831
  Serious: Yes (Other)
  Sender: FDA-Public Use
  Company Number: WAES 1103USA00339

PATIENT
  Age: 79 Year
  Sex: Female
  Weight: 60.3284 kg

DRUGS (8)
  1. PEPCID [Suspect]
     Indication: GASTRIC DISORDER
     Dosage: PO
     Route: 048
     Dates: end: 20110101
  2. ADVAIR DISKUS 100/50 [Concomitant]
  3. PROTONIX [Suspect]
     Indication: BARRETT'S OESOPHAGUS
     Dosage: DAILY, BID, PO
     Route: 048
     Dates: start: 20110101
  4. PROTONIX [Suspect]
     Indication: GASTROOESOPHAGEAL REFLUX DISEASE
     Dosage: DAILY, BID, PO
     Route: 048
     Dates: start: 20110101
  5. PROTONIX [Suspect]
     Indication: BARRETT'S OESOPHAGUS
     Dosage: DAILY, BID, PO
     Route: 048
     Dates: start: 20100101, end: 20110101
  6. PROTONIX [Suspect]
     Indication: GASTROOESOPHAGEAL REFLUX DISEASE
     Dosage: DAILY, BID, PO
     Route: 048
     Dates: start: 20100101, end: 20110101
  7. NEXIUM [Suspect]
     Dates: end: 20110101
  8. ASPIRIN [Suspect]
     Dates: end: 20110101

REACTIONS (3)
  - MYOCARDIAL INFARCTION [None]
  - GASTRIC DISORDER [None]
  - ARTHRITIS [None]
